FAERS Safety Report 4338231-1 (Version None)
Quarter: 2004Q2

REPORT INFORMATION
  Report Type: 
  Country: None (occurrence: None)
  Receive Date: 20040409
  Receipt Date: 20040405
  Transmission Date: 20050107
  Serious: Yes (Hospitalization)
  Sender: FDA-Public Use
  Company Number: 03P-056-0235605-00

PATIENT
  Age: 57 Year
  Sex: Male
  Weight: 80 kg

DRUGS (11)
  1. TRICOR [Suspect]
     Indication: LIPIDS ABNORMAL
     Dosage: 200 MG, 1 IN 1 D, ORAL
     Route: 048
     Dates: end: 20030814
  2. LAMIVUDINE [Concomitant]
  3. ABACAVIR SULFATE [Concomitant]
  4. VIREAD [Concomitant]
  5. GLYBURIDE [Concomitant]
  6. BACTRIM [Concomitant]
  7. METFORMIN HYDROCHLORIDE [Concomitant]
  8. RILMENIDINE [Concomitant]
  9. ATAZANVIR [Concomitant]
  10. PIOGLITAZONE HCL [Concomitant]
  11. RAMIPRIL [Concomitant]

REACTIONS (2)
  - RENAL FAILURE ACUTE [None]
  - TUBULOINTERSTITIAL NEPHRITIS [None]
